FAERS Safety Report 6269071-4 (Version None)
Quarter: 2009Q3

REPORT INFORMATION
  Report Type: 
  Country: None (occurrence: None)
  Receive Date: 20090714
  Receipt Date: 20090714
  Transmission Date: 20100115
  Serious: Yes (Death)
  Sender: FDA-Public Use
  Company Number: None

PATIENT
  Age: 66 Year
  Sex: Female
  Weight: 103.6 kg

DRUGS (1)
  1. TAXOL [Suspect]
     Indication: BREAST CANCER STAGE II
     Dosage: 175MG/M2 Q21D IV DRIP
     Route: 041
     Dates: start: 20070209, end: 20070209

REACTIONS (2)
  - ANAPHYLACTIC REACTION [None]
  - BRAIN DEATH [None]
